FAERS Safety Report 10558859 (Version 2)
Quarter: 2014Q4

REPORT INFORMATION
  Report Type: Report from Study
  Country: GB (occurrence: GB)
  Receive Date: 20141101
  Receipt Date: 20141117
  Transmission Date: 20150529
  Serious: Yes (Hospitalization)
  Sender: FDA-Public Use
  Company Number: GB-ACCORD-026671

PATIENT
  Age: 67 Year
  Sex: Female
  Weight: 70 kg

DRUGS (3)
  1. PACLITAXEL/PACLITAXEL LIPOSOME [Suspect]
     Active Substance: PACLITAXEL
     Indication: OVARIAN CANCER
     Dosage: 175 MG/M2, CYCLE
     Route: 041
     Dates: start: 20140530
  2. NO DRUG NAME [Suspect]
     Active Substance: UNSPECIFIED INGREDIENT
     Indication: OVARIAN CANCER
     Route: 041
     Dates: start: 20140530
  3. CARBOPLATIN. [Suspect]
     Active Substance: CARBOPLATIN
     Indication: OVARIAN CANCER
     Route: 041
     Dates: start: 20140530

REACTIONS (6)
  - Mucosal infection [Recovered/Resolved]
  - Pyrexia [Recovered/Resolved]
  - Lip pain [None]
  - Rash maculo-papular [Recovered/Resolved]
  - Lip swelling [None]
  - Drug eruption [None]

NARRATIVE: CASE EVENT DATE: 20140611
